FAERS Safety Report 9061386 (Version 1)
Quarter: 2013Q1

REPORT INFORMATION
  Report Type: Spontaneous
  Country: US (occurrence: US)
  Receive Date: 20130204
  Receipt Date: 20130204
  Transmission Date: 20140127
  Serious: Yes (Hospitalization)
  Sender: FDA-Public Use
  Company Number: 2013SP000298

PATIENT
  Sex: Female

DRUGS (1)
  1. LATUDA [Suspect]
     Indication: PRODUCT USED FOR UNKNOWN INDICATION
     Route: 048

REACTIONS (5)
  - Psychomotor hyperactivity [Unknown]
  - Mania [Unknown]
  - Hypersensitivity [Unknown]
  - Pruritus generalised [Unknown]
  - Dyskinesia [Unknown]
